FAERS Safety Report 10861096 (Version 1)
Quarter: 2015Q1

REPORT INFORMATION
  Report Type: Spontaneous
  Country: US (occurrence: None)
  Receive Date: 20150218
  Receipt Date: 20150218
  Transmission Date: 20150721
  Serious: No
  Sender: FDA-Public Use
  Company Number: None

PATIENT
  Sex: Female

DRUGS (1)
  1. SYLATRON [Suspect]
     Active Substance: PEGINTERFERON ALFA-2B
     Route: 058
     Dates: start: 20141218

REACTIONS (7)
  - Decreased appetite [None]
  - Vomiting [None]
  - Irritability [None]
  - Alopecia [None]
  - Mood altered [None]
  - Fatigue [None]
  - Headache [None]
